FAERS Safety Report 9276951 (Version 1)
Quarter: 2013Q2

REPORT INFORMATION
  Report Type: Spontaneous
  Country: US (occurrence: US)
  Receive Date: 20130507
  Receipt Date: 20130507
  Transmission Date: 20140414
  Serious: No
  Sender: FDA-Public Use
  Company Number: US-009507513-1305USA003016

PATIENT
  Age: 2 Year
  Sex: Male

DRUGS (3)
  1. CLARITIN ORAL SOLUTION [Suspect]
     Indication: EYE PRURITUS
     Dosage: UNK, UNKNOWN
     Route: 048
  2. CLARITIN ORAL SOLUTION [Suspect]
     Indication: LACRIMATION INCREASED
  3. CLARITIN ORAL SOLUTION [Suspect]
     Indication: MEDICAL OBSERVATION

REACTIONS (2)
  - Eye irritation [Not Recovered/Not Resolved]
  - Drug ineffective [Unknown]
